FAERS Safety Report 12949533 (Version 1)
Quarter: 2016Q4

REPORT INFORMATION
  Report Type: Spontaneous
  Country: US (occurrence: US)
  Receive Date: 20161116
  Receipt Date: 20161116
  Transmission Date: 20170207
  Serious: No
  Sender: FDA-Public Use
  Company Number: None

PATIENT
  Age: 49 Year
  Sex: Female
  Weight: 57.6 kg

DRUGS (4)
  1. DAILY VITAMIN [Concomitant]
     Active Substance: VITAMINS
  2. CREST PRO-HEALTH RINSE [Suspect]
     Active Substance: CETYLPYRIDINIUM CHLORIDE
     Indication: DENTAL DISORDER PROPHYLAXIS
     Dosage: 4 TEASPOON(S) TWICE A DAY, RINSE/SPIT OUT
     Dates: start: 20161025, end: 20161026
  3. IRON SUPPLEMENTS [Concomitant]
     Active Substance: IRON
  4. VITAMIN D [Concomitant]
     Active Substance: CHOLECALCIFEROL

REACTIONS (5)
  - Hypoaesthesia oral [None]
  - Product substitution issue [None]
  - Product taste abnormal [None]
  - Glossodynia [None]
  - Burning sensation [None]

NARRATIVE: CASE EVENT DATE: 20161025
